FAERS Safety Report 7407005-7 (Version None)
Quarter: 2011Q2

REPORT INFORMATION
  Report Type: 
  Country: None (occurrence: None)
  Receive Date: 20110411
  Receipt Date: 20110405
  Transmission Date: 20111010
  Serious: Yes (Other)
  Sender: FDA-Public Use
  Company Number: US-PFIZER INC-2011075667

PATIENT
  Sex: Male
  Weight: 77 kg

DRUGS (1)
  1. ZOLOFT [Suspect]
     Indication: DEPRESSION
     Dosage: UNK
     Dates: start: 20100101

REACTIONS (2)
  - BLOOD CHOLESTEROL INCREASED [None]
  - HYPOGLYCAEMIA [None]
